FAERS Safety Report 17577159 (Version 1)
Quarter: 2020Q1

REPORT INFORMATION
  Report Type: Spontaneous
  Country: US (occurrence: US)
  Receive Date: 20200324
  Receipt Date: 20200324
  Transmission Date: 20200409
  Serious: No
  Sender: FDA-Public Use
  Company Number: US-009507513-2002USA010036

PATIENT
  Age: 56 Year
  Sex: Female

DRUGS (21)
  1. ELOCON [Suspect]
     Active Substance: MOMETASONE FUROATE
     Indication: RASH
     Dosage: UNK
  2. DIPHENHYDRAMINE. [Suspect]
     Active Substance: DIPHENHYDRAMINE
     Indication: RASH
  3. TACROLIMUS. [Suspect]
     Active Substance: TACROLIMUS
     Indication: RASH
     Dosage: UNK
  4. ELOCON [Suspect]
     Active Substance: MOMETASONE FUROATE
     Indication: PRURITUS
  5. HYDROCORTISONE. [Suspect]
     Active Substance: HYDROCORTISONE
     Indication: RASH
  6. DESONIDE. [Suspect]
     Active Substance: DESONIDE
     Indication: PRURITUS
  7. DIPHENHYDRAMINE. [Suspect]
     Active Substance: DIPHENHYDRAMINE
     Indication: RASH
     Dosage: UNK
  8. TRIAMCINOLONE [Suspect]
     Active Substance: TRIAMCINOLONE
     Indication: PRURITUS
  9. DESONIDE. [Suspect]
     Active Substance: DESONIDE
     Indication: RASH
  10. HYDROCORTISONE. [Suspect]
     Active Substance: HYDROCORTISONE
     Indication: RASH
     Dosage: UNK
  11. ELOCON [Suspect]
     Active Substance: MOMETASONE FUROATE
     Indication: RASH
  12. DIPHENHYDRAMINE. [Suspect]
     Active Substance: DIPHENHYDRAMINE
     Indication: PRURITUS
  13. TACROLIMUS. [Suspect]
     Active Substance: TACROLIMUS
     Indication: RASH
  14. PIMECROLIMUS. [Suspect]
     Active Substance: PIMECROLIMUS
     Indication: RASH
     Dosage: UNK
  15. PIMECROLIMUS. [Suspect]
     Active Substance: PIMECROLIMUS
     Indication: RASH
  16. TRIAMCINOLONE [Suspect]
     Active Substance: TRIAMCINOLONE
     Indication: RASH
  17. HYDROCORTISONE. [Suspect]
     Active Substance: HYDROCORTISONE
     Indication: PRURITUS
  18. TACROLIMUS. [Suspect]
     Active Substance: TACROLIMUS
     Indication: PRURITUS
  19. PIMECROLIMUS. [Suspect]
     Active Substance: PIMECROLIMUS
     Indication: PRURITUS
  20. TRIAMCINOLONE [Suspect]
     Active Substance: TRIAMCINOLONE
     Indication: RASH
     Dosage: UNK
  21. DESONIDE. [Suspect]
     Active Substance: DESONIDE
     Indication: RASH
     Dosage: UNK

REACTIONS (1)
  - Drug ineffective [Unknown]
